FAERS Safety Report 21224074 (Version 1)
Quarter: 2022Q3

REPORT INFORMATION
  Report Type: Spontaneous
  Country: US (occurrence: US)
  Receive Date: 20220817
  Receipt Date: 20220817
  Transmission Date: 20221027
  Serious: No
  Sender: FDA-Public Use
  Company Number: US-SA-2021MK000156

PATIENT
  Age: 52 Year
  Sex: Female
  Weight: 68.100 kg

DRUGS (6)
  1. AFREZZA [Suspect]
     Active Substance: INSULIN HUMAN
     Indication: Type 1 diabetes mellitus
     Dosage: 8-16 UNITS PREMEAL THREE TIMES DAILY
     Dates: start: 2017
  2. AFREZZA [Suspect]
     Active Substance: INSULIN HUMAN
     Dosage: 8-16 UNITS PREMEAL THREE TIMES DAILY
     Dates: start: 2017
  3. TRESIBA [Concomitant]
     Active Substance: INSULIN DEGLUDEC
     Indication: Type 1 diabetes mellitus
     Route: 058
     Dates: start: 2019
  4. ATORVASTATIN [Concomitant]
     Active Substance: ATORVASTATIN
     Indication: Blood cholesterol increased
     Route: 048
     Dates: start: 2017
  5. LISINOPRIL [Concomitant]
     Active Substance: LISINOPRIL
     Route: 048
     Dates: start: 2020
  6. HUMALOG [Concomitant]
     Active Substance: INSULIN LISPRO
     Indication: Type 1 diabetes mellitus
     Dosage: SLIDING SCALE BASED ON CARB INTAKE PREMEAL
     Route: 058

REACTIONS (1)
  - Therapeutic product effect decreased [Unknown]
